FAERS Safety Report 21414975 (Version 1)
Quarter: 2022Q4

REPORT INFORMATION
  Report Type: Spontaneous
  Country: US (occurrence: US)
  Receive Date: 20221006
  Receipt Date: 20221006
  Transmission Date: 20230113
  Serious: No
  Sender: FDA-Public Use
  Company Number: US-009507513-2209USA003774

PATIENT
  Age: 52 Year
  Sex: Male

DRUGS (1)
  1. INTEGRILIN [Suspect]
     Active Substance: EPTIFIBATIDE
     Indication: Acute coronary syndrome

REACTIONS (1)
  - Contraindicated product administered [Unknown]
